FAERS Safety Report 7530210-6 (Version None)
Quarter: 2011Q2

REPORT INFORMATION
  Report Type: 
  Country: None (occurrence: None)
  Receive Date: 20110607
  Receipt Date: 20110531
  Transmission Date: 20111010
  Serious: Yes (Hospitalization)
  Sender: FDA-Public Use
  Company Number: PHHY2011GR47486

PATIENT
  Age: 47 Year
  Sex: Female

DRUGS (5)
  1. TRASTUZUMAB [Suspect]
     Dosage: UNK
     Dates: start: 20080501, end: 20080901
  2. GOSERELIN [Suspect]
     Dosage: 10.75 MG, Q3MO
     Route: 030
  3. CARBOPLATIN [Suspect]
     Dosage: UNK
     Dates: start: 20080501, end: 20080901
  4. DOCETAXEL [Suspect]
     Dosage: UNK
     Dates: start: 20080501, end: 20080901
  5. TAMOXIFEN CITRATE [Suspect]
     Dosage: UNK

REACTIONS (9)
  - PYREXIA [None]
  - CHILLS [None]
  - SWELLING [None]
  - ERYTHEMA [None]
  - DERMATITIS [None]
  - RECALL PHENOMENON [None]
  - PAIN [None]
  - TENDERNESS [None]
  - UTERINE LEIOMYOMA [None]
